FAERS Safety Report 14221763 (Version 2)
Quarter: 2018Q1

REPORT INFORMATION
  Report Type: Spontaneous
  Country: FR (occurrence: FR)
  Receive Date: 20171123
  Receipt Date: 20180322
  Transmission Date: 20180508
  Serious: Yes (Other)
  Sender: FDA-Public Use
  Company Number: FR-MERCK KGAA-2034986

PATIENT
  Age: 79 Year
  Sex: Female

DRUGS (1)
  1. NOVOTHYROX [Suspect]
     Active Substance: LEVOTHYROXINE SODIUM
     Indication: THYROIDECTOMY
     Dates: start: 2017

REACTIONS (21)
  - Vertigo [None]
  - Sensory disturbance [None]
  - Oedema [None]
  - Eye oedema [None]
  - Pruritus [None]
  - Speech disorder [None]
  - Hyperhidrosis [None]
  - Myalgia [None]
  - Gait disturbance [None]
  - Weight decreased [Not Recovered/Not Resolved]
  - Alopecia [None]
  - Lacrimation increased [None]
  - Muscle spasms [None]
  - Fatigue [None]
  - Arthralgia [None]
  - Insomnia [None]
  - Nausea [None]
  - Nervousness [None]
  - Paralysis [None]
  - Tremor [None]
  - Headache [None]

NARRATIVE: CASE EVENT DATE: 2017
